FAERS Safety Report 18457625 (Version 1)
Quarter: 2020Q4

REPORT INFORMATION
  Report Type: Spontaneous
  Country: US (occurrence: US)
  Receive Date: 20201103
  Receipt Date: 20201103
  Transmission Date: 20210114
  Serious: No
  Sender: FDA-Public Use
  Company Number: US-BAYER-2020-237015

PATIENT
  Age: 71 Year
  Sex: Female

DRUGS (3)
  1. MIRALAX [Suspect]
     Active Substance: POLYETHYLENE GLYCOL 3350
  2. LINZESS [Concomitant]
     Active Substance: LINACLOTIDE
  3. PHILLIPS^ COLON HEALTH [Suspect]
     Active Substance: PROBIOTICS NOS
     Indication: CONSTIPATION
     Dosage: 1 DF
     Route: 048
     Dates: start: 20200610

REACTIONS (2)
  - Drug ineffective [Unknown]
  - Contraindicated product administered [None]
